FAERS Safety Report 9220785 (Version 6)
Quarter: 2014Q1

REPORT INFORMATION
  Report Type: Report from Study
  Country: JP (occurrence: JP)
  Receive Date: 20130409
  Receipt Date: 20140131
  Transmission Date: 20141002
  Serious: Yes (Other)
  Sender: FDA-Public Use
  Company Number: JP-JNJFOC-20130400613

PATIENT
  Age: 52 Year
  Sex: Male
  Weight: 71 kg

DRUGS (7)
  1. STELARA [Suspect]
     Indication: PSORIASIS
     Route: 058
     Dates: start: 20131022
  2. STELARA [Suspect]
     Indication: PSORIASIS
     Route: 058
     Dates: start: 20130716, end: 20130716
  3. STELARA [Suspect]
     Indication: PSORIASIS
     Route: 058
     Dates: start: 20130423, end: 20130423
  4. STELARA [Suspect]
     Indication: PSORIASIS
     Route: 058
     Dates: start: 20130226, end: 20130226
  5. ANTEBATE [Concomitant]
     Indication: PSORIASIS
     Route: 061
  6. MAXACALCITOL [Concomitant]
     Indication: PSORIASIS
     Route: 061
  7. PAXIL [Concomitant]
     Indication: ANXIETY DISORDER
     Route: 048
     Dates: end: 201304

REACTIONS (2)
  - Hyperkalaemia [Not Recovered/Not Resolved]
  - Renal impairment [Recovered/Resolved]
